FAERS Safety Report 21705301 (Version 1)
Quarter: 2022Q4

REPORT INFORMATION
  Report Type: Spontaneous
  Country: US (occurrence: US)
  Receive Date: 20221209
  Receipt Date: 20221209
  Transmission Date: 20230113
  Serious: Yes (Hospitalization, Other)
  Sender: FDA-Public Use
  Company Number: US-CHEPLA-2022011708

PATIENT
  Age: 44 Year
  Sex: Female

DRUGS (16)
  1. CLONAZEPAM [Suspect]
     Active Substance: CLONAZEPAM
     Indication: Product used for unknown indication
     Dates: end: 20220217
  2. CLONAZEPAM [Suspect]
     Active Substance: CLONAZEPAM
     Indication: Anxiety
     Dates: end: 20220217
  3. BOTOX [Suspect]
     Active Substance: ONABOTULINUMTOXINA
     Indication: Migraine prophylaxis
     Dosage: SINGE
     Dates: start: 202112, end: 202112
  4. QULIPTA [Suspect]
     Active Substance: ATOGEPANT
     Indication: Medication overuse headache
     Dosage: QOD?DAILY DOSE: 60 MILLIGRAM
     Dates: end: 20220217
  5. LINZESS [Suspect]
     Active Substance: LINACLOTIDE
     Indication: Constipation
     Dates: end: 20220217
  6. ADDERALL [Suspect]
     Active Substance: AMPHETAMINE ASPARTATE\AMPHETAMINE SULFATE\DEXTROAMPHETAMINE SACCHARATE\DEXTROAMPHETAMINE SULFATE
     Indication: Attention deficit hyperactivity disorder
     Dates: end: 20220217
  7. PAROXETINE [Suspect]
     Active Substance: PAROXETINE
     Indication: Depression
     Dates: end: 20220217
  8. FENTANYL [Suspect]
     Active Substance: FENTANYL
     Indication: Breast operation
     Dates: start: 20211228, end: 20211228
  9. FENTANYL [Suspect]
     Active Substance: FENTANYL
     Indication: Vulvovaginal mycotic infection
     Dates: start: 20211228, end: 20211228
  10. SUCCINYLCHOLINE [Suspect]
     Active Substance: SUCCINYLCHOLINE
     Indication: Breast operation
     Dates: start: 20211228, end: 20211228
  11. ROCURONIUM [Suspect]
     Active Substance: ROCURONIUM BROMIDE
     Indication: Breast operation
     Dates: start: 20211228, end: 20211228
  12. CEFAZOLIN [Suspect]
     Active Substance: CEFAZOLIN
     Indication: Product used for unknown indication
  13. LACTULOSE [Suspect]
     Active Substance: LACTULOSE
     Indication: Constipation
     Dates: end: 20220217
  14. MIRALAX [Suspect]
     Active Substance: POLYETHYLENE GLYCOL 3350
     Indication: Constipation
     Dates: end: 20220217
  15. FLUCONAZOLE [Suspect]
     Active Substance: FLUCONAZOLE
     Dosage: SINGLE
     Dates: start: 20220114, end: 20220114
  16. TRAZODONE [Suspect]
     Active Substance: TRAZODONE HYDROCHLORIDE
     Indication: Anxiety
     Dosage: PRN
     Dates: end: 20220217

REACTIONS (5)
  - Multiple organ dysfunction syndrome [Unknown]
  - Acute hepatic failure [Not Recovered/Not Resolved]
  - Constipation [Not Recovered/Not Resolved]
  - Vulvovaginal mycotic infection [Unknown]
  - Breast operation [Unknown]

NARRATIVE: CASE EVENT DATE: 20220104
